FAERS Safety Report 18028976 (Version 1)
Quarter: 2020Q3

REPORT INFORMATION
  Report Type: Spontaneous
  Country: US (occurrence: US)
  Receive Date: 20200715
  Receipt Date: 20200715
  Transmission Date: 20201103
  Serious: No
  Sender: FDA-Public Use
  Company Number: US-TEVA-2020-US-1800193

PATIENT
  Age: 86 Year
  Sex: Female

DRUGS (1)
  1. METOPROLOL SUCCINATE TEVA [Suspect]
     Active Substance: METOPROLOL SUCCINATE
     Dosage: EXTENDED?RELEASE TABLETS
     Route: 065

REACTIONS (3)
  - Headache [Recovered/Resolved]
  - Dizziness [Recovered/Resolved]
  - Impaired work ability [Recovered/Resolved]
